FAERS Safety Report 21307128 (Version 1)
Quarter: 2022Q3

REPORT INFORMATION
  Report Type: Spontaneous
  Country: US (occurrence: US)
  Receive Date: 20220908
  Receipt Date: 20220908
  Transmission Date: 20221027
  Serious: Yes (Other)
  Sender: FDA-Public Use
  Company Number: US-MYLANLABS-2022M1092004

PATIENT
  Age: 5 Decade
  Sex: Male

DRUGS (7)
  1. QUETIAPINE [Suspect]
     Active Substance: QUETIAPINE
     Indication: Psychotic symptom
     Dosage: 25 MILLIGRAM, TID (THREE TIMES A DAY) (CONTROLLED RELEASE)
     Route: 048
  2. QUETIAPINE [Suspect]
     Active Substance: QUETIAPINE
     Indication: Huntington^s disease
     Dosage: 500 MILLIGRAM, BID (CONTROLLED RELEASE)
     Route: 048
  3. HALOPERIDOL [Suspect]
     Active Substance: HALOPERIDOL
     Indication: Agitation
     Dosage: 5 MILLIGRAM, Q4H (AS NEEDED)
     Route: 048
  4. LORAZEPAM [Suspect]
     Active Substance: LORAZEPAM
     Indication: Agitation
     Dosage: 2 MILLIGRAM, Q4H (AS NEEDED)
     Route: 048
  5. CLOZAPINE [Suspect]
     Active Substance: CLOZAPINE
     Indication: Huntington^s disease
     Dosage: UNK
     Route: 065
  6. CLOZAPINE [Suspect]
     Active Substance: CLOZAPINE
     Indication: Psychotic symptom
  7. DIAZEPAM [Concomitant]
     Active Substance: DIAZEPAM
     Indication: Anxiety
     Dosage: 5 MILLIGRAM, TID (THREE TIMES A DAY)
     Route: 065

REACTIONS (4)
  - Drug ineffective [Unknown]
  - Hypertransaminasaemia [Recovered/Resolved]
  - Sedation [Unknown]
  - Salivary hypersecretion [Unknown]
